FAERS Safety Report 5664350-3 (Version None)
Quarter: 2008Q1

REPORT INFORMATION
  Report Type: 
  Country: None (occurrence: None)
  Receive Date: 20080314
  Receipt Date: 20080229
  Transmission Date: 20080703
  Serious: Yes (Other)
  Sender: FDA-Public Use
  Company Number: GB-BAYER-200810603BNE

PATIENT
  Age: 20 Year
  Sex: Male

DRUGS (1)
  1. ULTRAVIST 300 [Suspect]
     Indication: DRUG USE FOR UNKNOWN INDICATION

REACTIONS (5)
  - ANAPHYLACTIC REACTION [None]
  - COLD SWEAT [None]
  - HYPERHIDROSIS [None]
  - OXYGEN SATURATION DECREASED [None]
  - URTICARIA [None]
